FAERS Safety Report 6710738-9 (Version None)
Quarter: 2010Q2

REPORT INFORMATION
  Report Type: 
  Country: None (occurrence: None)
  Receive Date: 20100504
  Receipt Date: 20100504
  Transmission Date: 20101027
  Serious: Yes (Life-Threatening)
  Sender: FDA-Public Use
  Company Number: None

PATIENT
  Age: 68 Year
  Sex: Male
  Weight: 115 kg

DRUGS (1)
  1. NAFCILLIN SODIUM [Suspect]
     Indication: ARTHRITIS INFECTIVE
     Dosage: 12 G DAILY IV
     Route: 042
     Dates: start: 20100320, end: 20100419

REACTIONS (3)
  - NAUSEA [None]
  - TUBULOINTERSTITIAL NEPHRITIS [None]
  - VOMITING [None]
